FAERS Safety Report 4579875-1 (Version None)
Quarter: 2005Q1

REPORT INFORMATION
  Report Type: 
  Country: None (occurrence: None)
  Receive Date: 20050210
  Receipt Date: 20050126
  Transmission Date: 20050727
  Serious: Yes (Death, Hospitalization)
  Sender: FDA-Public Use
  Company Number: 2004AL000664

PATIENT
  Age: 40 Year
  Sex: Female

DRUGS (6)
  1. CARBAMAZEPINE [Suspect]
     Dosage: PO
     Route: 048
  2. CLONAZEPAM [Suspect]
     Dosage: PO
     Route: 048
  3. QUETIAPINE FUMARATE [Suspect]
     Dosage: PO
     Route: 048
  4. CHLORDIAZEPOXIDE [Suspect]
     Dosage: PO
     Route: 048
  5. ACETAMINOPHEN/HYDROCODONE [Suspect]
     Dosage: PO
     Route: 048
  6. LITHIUM [Suspect]
     Dosage: PO
     Route: 048

REACTIONS (6)
  - CARDIAC ARREST [None]
  - COMPLETED SUICIDE [None]
  - NERVOUS SYSTEM DISORDER [None]
  - PNEUMONIA [None]
  - PUPIL FIXED [None]
  - RESPIRATORY ARREST [None]
